FAERS Safety Report 5976967-7 (Version None)
Quarter: 2008Q4

REPORT INFORMATION
  Report Type: 
  Country: None (occurrence: None)
  Receive Date: 20081203
  Receipt Date: 20080725
  Transmission Date: 20090506
  Serious: Yes (Other)
  Sender: FDA-Public Use
  Company Number: US-AMGEN-QUU265276

PATIENT
  Sex: Male

DRUGS (2)
  1. ENBREL [Suspect]
     Indication: PSORIASIS
     Route: 058
     Dates: start: 20040701, end: 20060322
  2. UNSPECIFIED ANTIHYPERTENSIVE AGENT [Concomitant]

REACTIONS (1)
  - MYELITIS TRANSVERSE [None]
